FAERS Safety Report 4376306-1 (Version None)
Quarter: 2004Q2

REPORT INFORMATION
  Report Type: 
  Country: None (occurrence: None)
  Receive Date: 20040608
  Receipt Date: 20030425
  Transmission Date: 20050107
  Serious: Yes (Other)
  Sender: FDA-Public Use
  Company Number: 200311416BCC

PATIENT
  Age: 61 Year
  Sex: Female

DRUGS (3)
  1. ALEVE [Suspect]
     Indication: PLANTAR FASCIITIS
     Dosage: 220 MG, QD, ORAL
     Route: 048
     Dates: start: 20030220, end: 20030301
  2. AVANDIA [Concomitant]
  3. ZESTRIL [Concomitant]

REACTIONS (1)
  - BLOOD URINE [None]
